FAERS Safety Report 10339821 (Version 1)
Quarter: 2014Q3

REPORT INFORMATION
  Report Type: Spontaneous
  Country: US (occurrence: US)
  Receive Date: 20140724
  Receipt Date: 20140724
  Transmission Date: 20150326
  Serious: No
  Sender: FDA-Public Use
  Company Number: US-ALLERGAN-1312253US

PATIENT
  Age: 87 Year
  Sex: Female

DRUGS (1)
  1. SANCTURA [Suspect]
     Active Substance: TROSPIUM CHLORIDE
     Indication: POLLAKIURIA
     Dosage: UNK UNK, QAM
     Route: 048

REACTIONS (3)
  - Therapeutic response decreased [Unknown]
  - Expired product administered [Unknown]
  - Tinnitus [Not Recovered/Not Resolved]
